FAERS Safety Report 25675869 (Version 1)
Quarter: 2025Q3

REPORT INFORMATION
  Report Type: Spontaneous
  Country: EU (occurrence: EU)
  Receive Date: 20250813
  Receipt Date: 20250813
  Transmission Date: 20251020
  Serious: Yes (Other)
  Sender: CHEPLAPHARM
  Company Number: None

PATIENT
  Sex: Male
  Weight: 80 kg

DRUGS (3)
  1. ORLISTAT [Suspect]
     Active Substance: ORLISTAT
     Indication: Overweight
     Dates: start: 2002
  2. ORLISTAT [Suspect]
     Active Substance: ORLISTAT
     Indication: Overweight
     Dates: start: 2006
  3. DIETARY SUPPLEMENT [Suspect]
     Active Substance: DIETARY SUPPLEMENT
     Dates: start: 2013

REACTIONS (5)
  - Rectosigmoid cancer [Unknown]
  - Metastases to liver [Not Recovered/Not Resolved]
  - Metastases to peritoneum [Not Recovered/Not Resolved]
  - Withdrawal syndrome [Unknown]
  - Constipation [Unknown]

NARRATIVE: CASE EVENT DATE: 20060101
